FAERS Safety Report 23708626 (Version 9)
Quarter: 2025Q2

REPORT INFORMATION
  Report Type: Report from Study
  Country: JP (occurrence: JP)
  Receive Date: 20240404
  Receipt Date: 20250627
  Transmission Date: 20250716
  Serious: Yes (Hospitalization, Other)
  Sender: GENMAB
  Company Number: JP-GENMAB-2024-00170AA

PATIENT
  Age: 71 Year
  Sex: Male
  Weight: 48 kg

DRUGS (19)
  1. EPKINLY [Suspect]
     Active Substance: EPCORITAMAB-BYSP
     Indication: Diffuse large B-cell lymphoma refractory
     Route: 058
     Dates: start: 20231227, end: 20231227
  2. EPKINLY [Suspect]
     Active Substance: EPCORITAMAB-BYSP
     Route: 058
     Dates: start: 20240104, end: 20240104
  3. EPKINLY [Suspect]
     Active Substance: EPCORITAMAB-BYSP
     Route: 058
     Dates: start: 20240201, end: 20240201
  4. EPKINLY [Suspect]
     Active Substance: EPCORITAMAB-BYSP
     Route: 058
     Dates: start: 20240208, end: 20240208
  5. EPKINLY [Suspect]
     Active Substance: EPCORITAMAB-BYSP
     Route: 058
     Dates: start: 20240215, end: 2024
  6. RITUXIMAB [Suspect]
     Active Substance: RITUXIMAB
  7. ETOPOSIDE [Suspect]
     Active Substance: ETOPOSIDE
  8. CISPLATIN [Suspect]
     Active Substance: CISPLATIN
  9. CYTARABINE [Suspect]
     Active Substance: CYTARABINE
  10. METHYLPREDNISOLONE [Suspect]
     Active Substance: METHYLPREDNISOLONE
  11. PREDNISOLONE [Concomitant]
     Active Substance: PREDNISOLONE
     Indication: Prophylaxis
     Dates: start: 20231227, end: 2024
  12. PREDNISOLONE [Concomitant]
     Active Substance: PREDNISOLONE
     Indication: Tumour flare
     Dates: start: 202301, end: 2024
  13. PREDNISOLONE [Concomitant]
     Active Substance: PREDNISOLONE
     Indication: Cytokine release syndrome
     Dates: start: 202401, end: 2024
  14. ATOVAQUONE [Concomitant]
     Active Substance: ATOVAQUONE
     Dosage: 10 MILLILITER, 1X
     Route: 048
  15. ACYCLOVIR [Concomitant]
     Active Substance: ACYCLOVIR
     Dosage: 200 MILLIGRAM, 1T1X
     Route: 048
  16. FAMOTIDINE [Concomitant]
     Active Substance: FAMOTIDINE
     Dosage: 20 MILLIGRAM, 1T1X
     Route: 048
  17. SITAFLOXACIN [Concomitant]
     Active Substance: SITAFLOXACIN
     Dosage: 50 MILLIGRAM, 2T1X
     Route: 048
  18. ACETAMINOPHEN [Concomitant]
     Active Substance: ACETAMINOPHEN
     Dosage: 500 MILLIGRAM, 8T4X
     Route: 048
  19. MAGNESIUM OXIDE [Concomitant]
     Active Substance: MAGNESIUM OXIDE
     Dosage: 330 MILLIGRAM, 1T1X
     Route: 048

REACTIONS (14)
  - Malaise [Recovered/Resolved]
  - Disorientation [Recovered/Resolved]
  - Cytomegalovirus infection reactivation [Recovering/Resolving]
  - Tumour flare [Recovered/Resolved]
  - Tumour flare [Recovered/Resolved]
  - Cytokine release syndrome [Recovered/Resolved]
  - Cytokine release syndrome [Recovered/Resolved]
  - Neutropenic colitis [Recovered/Resolved]
  - Stenotrophomonas bacteraemia [Not Recovered/Not Resolved]
  - Neutrophil count decreased [Recovered/Resolved]
  - Platelet count decreased [Recovered/Resolved]
  - Anaemia [Recovering/Resolving]
  - Diffuse large B-cell lymphoma refractory [Not Recovered/Not Resolved]
  - Tonsillar neoplasm [Unknown]

NARRATIVE: CASE EVENT DATE: 20240104
